FAERS Safety Report 7944772-8 (Version None)
Quarter: 2011Q4

REPORT INFORMATION
  Report Type: 
  Country: None (occurrence: None)
  Receive Date: 20111129
  Receipt Date: 20111123
  Transmission Date: 20120403
  Serious: Yes (Life-Threatening)
  Sender: FDA-Public Use
  Company Number: FR-EISAI INC-E2090-01867-SPO-FR

PATIENT
  Age: 40 Year
  Sex: Female

DRUGS (4)
  1. TEGRETOL [Suspect]
     Dosage: 800 MG DAILY
     Route: 048
  2. PHENOBARBITAL TAB [Suspect]
     Dosage: 150 MG DAILY
     Route: 048
  3. VIMPAT [Suspect]
     Dosage: 300 MG DAILY
     Route: 048
  4. ZONEGRAN [Suspect]
     Dosage: 500 MG DAILY
     Route: 048

REACTIONS (3)
  - ANAEMIA MACROCYTIC [None]
  - NEUTROPENIA [None]
  - LEUKOPENIA [None]
